FAERS Safety Report 5341272-9 (Version None)
Quarter: 2007Q2

REPORT INFORMATION
  Report Type: 
  Country: None (occurrence: None)
  Receive Date: 20070530
  Receipt Date: 20070518
  Transmission Date: 20071010
  Serious: No
  Sender: FDA-Public Use
  Company Number: TPA2007A00313

PATIENT
  Age: 9 Year
  Sex: Female

DRUGS (3)
  1. ROZEREM [Suspect]
     Dosage: 8 MG, UNKNOWN, PER ORAL
     Route: 048
     Dates: start: 20070201, end: 20070201
  2. DRAMAMINE [Suspect]
  3. CLONIDINE [Suspect]

REACTIONS (2)
  - LOSS OF CONSCIOUSNESS [None]
  - VOMITING [None]
